FAERS Safety Report 22602289 (Version 1)
Quarter: 2023Q2

REPORT INFORMATION
  Report Type: Spontaneous
  Country: SE (occurrence: SE)
  Receive Date: 20230614
  Receipt Date: 20230614
  Transmission Date: 20230722
  Serious: Yes (Other)
  Sender: FDA-Public Use
  Company Number: None

PATIENT
  Age: 87 Year
  Sex: Male

DRUGS (14)
  1. EZETIMIBE [Suspect]
     Active Substance: EZETIMIBE
     Dosage: 10 MILLIGRAM, QD
  2. ROSUVASTATIN [Suspect]
     Active Substance: ROSUVASTATIN
     Dosage: UNK
  3. ATORVASTATIN [Suspect]
     Active Substance: ATORVASTATIN
     Dosage: 10 MILLIGRAM, QD
  4. IMDUR [Concomitant]
     Active Substance: ISOSORBIDE MONONITRATE
     Dosage: 30 MILLIGRAM, QD
     Dates: start: 20191002
  5. UREA [Concomitant]
     Active Substance: UREA
     Dosage: 1 APPLICATION ONCE DAILY
     Dates: start: 20230203
  6. CEFUROXIME [Concomitant]
     Active Substance: CEFUROXIME
     Dates: start: 20181109
  7. DESLORATADINE [Concomitant]
     Active Substance: DESLORATADINE
     Dosage: 1-2 TABLETS 1-2 TIMES DAILY
     Dates: start: 20190613
  8. DERMOVAT [BETAMETHASONE VALERATE] [Concomitant]
     Dosage: ACCORDING TO SPECIAL PRESCRIPTION: 1 APPLICATION IN THE EVENING FOR 2 WEEKS, THEN 2 EVENINGS/WEEK
     Dates: start: 20200108
  9. PROPYDERM [PROPYLENE GLYCOL] [Concomitant]
     Dosage: 1 APPLICATION 2 TIMES DAILY
     Dates: start: 20180904
  10. OXYCODONE HYDROCHLORIDE [Concomitant]
     Active Substance: OXYCODONE HYDROCHLORIDE
     Dosage: 1 CAPSULE AS NEEDED
  11. EMOVAT [Concomitant]
     Dosage: ACCORDING TO SPECIAL PRESCRIPTION: APPLIED 2 TIMES DAILY FOR 2 WEEKS, THEN 2 EVENINGS PER WEEK
  12. MOVICOL [Concomitant]
     Active Substance: POLYETHYLENE GLYCOL 3350\POTASSIUM CHLORIDE\SODIUM BICARBONATE\SODIUM CHLORIDE
     Dosage: 1 SACHET IF NEEDED 1-3 TIMES DAILY
     Dates: start: 20220622
  13. WARFARIN SODIUM [Concomitant]
     Active Substance: WARFARIN SODIUM
     Dosage: ACCORDING TO PRESCRIPTION 1 TABLET 1 TIME DAILY
     Dates: start: 20180214
  14. CANDESARTAN [Concomitant]
     Active Substance: CANDESARTAN
     Dosage: 4 MILLIGRAM, QD
     Dates: start: 20201030

REACTIONS (2)
  - Muscle atrophy [Recovering/Resolving]
  - Myopathy [Recovering/Resolving]
